FAERS Safety Report 7013783-1 (Version None)
Quarter: 2010Q3

REPORT INFORMATION
  Report Type: 
  Country: None (occurrence: None)
  Receive Date: 20100924
  Receipt Date: 20100917
  Transmission Date: 20110219
  Serious: Yes (Hospitalization)
  Sender: FDA-Public Use
  Company Number: US-ABBOTT-10P-163-0671483-00

PATIENT
  Age: 74 Year
  Sex: Male

DRUGS (2)
  1. LEUPRORELIN DEPOT [Suspect]
     Indication: PROSTATE CANCER
     Route: 030
  2. LEUPRORELIN DEPOT [Suspect]
     Dates: start: 20090930

REACTIONS (2)
  - AGITATION [None]
  - PSYCHOTIC DISORDER [None]
